FAERS Safety Report 7364235-0 (Version None)
Quarter: 2011Q1

REPORT INFORMATION
  Report Type: 
  Country: None (occurrence: None)
  Receive Date: 20110321
  Receipt Date: 20110316
  Transmission Date: 20110831
  Serious: Yes (Hospitalization, Other)
  Sender: FDA-Public Use
  Company Number: A0902019A

PATIENT
  Age: 54 Year
  Sex: Female
  Weight: 70.9 kg

DRUGS (7)
  1. ACCUPRIL [Concomitant]
  2. AVASTIN [Suspect]
  3. VOTRIENT [Suspect]
     Dosage: 800MG PER DAY
     Route: 048
     Dates: start: 20100901, end: 20101228
  4. OPIOIDS [Concomitant]
  5. ZOLEDRONIC ACID [Concomitant]
  6. KLONOPIN [Concomitant]
  7. TORISEL [Concomitant]

REACTIONS (2)
  - BLINDNESS [None]
  - POSTERIOR REVERSIBLE ENCEPHALOPATHY SYNDROME [None]
